FAERS Safety Report 18026706 (Version 1)
Quarter: 2020Q3

REPORT INFORMATION
  Report Type: Spontaneous
  Country: US (occurrence: US)
  Receive Date: 20200715
  Receipt Date: 20200715
  Transmission Date: 20201103
  Serious: Yes (Other)
  Sender: FDA-Public Use
  Company Number: US-AMERICAN REGENT INC-2020001367

PATIENT
  Age: 54 Year
  Sex: Male

DRUGS (5)
  1. FAMOTIDINE. [Concomitant]
     Active Substance: FAMOTIDINE
     Indication: ANAPHYLACTIC REACTION
     Dosage: UNK
     Route: 065
  2. EPINEPHRINE INJECTION, USP (0517?1071?01) [Suspect]
     Active Substance: EPINEPHRINE
     Indication: ANAPHYLACTIC REACTION
     Dosage: UNK
     Route: 058
  3. EPINEPHRINE INJECTION, USP (0517?1071?01) [Suspect]
     Active Substance: EPINEPHRINE
     Dosage: UNK
  4. DIPHENHYDRAMINE. [Concomitant]
     Active Substance: DIPHENHYDRAMINE
     Indication: ANAPHYLACTIC REACTION
     Dosage: UNK
     Route: 065
  5. METHYLPREDNISOLONE. [Concomitant]
     Active Substance: METHYLPREDNISOLONE
     Indication: ANAPHYLACTIC REACTION
     Dosage: UNK
     Route: 065

REACTIONS (2)
  - Incorrect route of product administration [Unknown]
  - Lactic acidosis [Recovering/Resolving]
